FAERS Safety Report 19719563 (Version 2)
Quarter: 2021Q4

REPORT INFORMATION
  Report Type: Spontaneous
  Country: CA (occurrence: None)
  Receive Date: 20210818
  Receipt Date: 20211217
  Transmission Date: 20220303
  Serious: Yes (Other)
  Sender: FDA-Public Use
  Company Number: 2021A676246

PATIENT
  Age: 76 Year
  Sex: Female

DRUGS (5)
  1. FASLODEX [Suspect]
     Active Substance: FULVESTRANT
     Indication: Product used for unknown indication
     Route: 030
  2. IBRANCE [Suspect]
     Active Substance: PALBOCICLIB
     Indication: Product used for unknown indication
     Route: 065
  3. IBRANCE [Suspect]
     Active Substance: PALBOCICLIB
     Indication: Product used for unknown indication
     Dosage: CYCLICAL125.0MG UNKNOWN
     Route: 065
     Dates: start: 20160819, end: 20210212
  4. IBRANCE [Suspect]
     Active Substance: PALBOCICLIB
     Indication: Product used for unknown indication
     Dosage: CYCLICAL100.0MG UNKNOWN
     Route: 065
  5. FULVESTRANT [Concomitant]
     Active Substance: FULVESTRANT
     Dosage: UNK
     Route: 065

REACTIONS (2)
  - Pancreatic carcinoma [Not Recovered/Not Resolved]
  - Second primary malignancy [Not Recovered/Not Resolved]
